FAERS Safety Report 23896773 (Version 5)
Quarter: 2024Q3

REPORT INFORMATION
  Report Type: Spontaneous
  Country: JP (occurrence: JP)
  Receive Date: 20240524
  Receipt Date: 20240830
  Transmission Date: 20241017
  Serious: Yes (Hospitalization)
  Sender: AKEBIA THERAPEUTICS
  Company Number: JP-IQVIA-JT2024JP000199

PATIENT
  Age: 84 Year
  Sex: Male
  Weight: 71 kg

DRUGS (29)
  1. FERRIC CITRATE ANHYDROUS [Suspect]
     Active Substance: FERRIC CITRATE ANHYDROUS
     Indication: Iron deficiency anaemia
     Dosage: 500 MILLIGRAM, QD
     Route: 048
  2. ENARODUSTAT [Suspect]
     Active Substance: ENARODUSTAT
     Indication: Nephrogenic anaemia
     Dosage: 2 MILLIGRAM, QD
     Route: 048
     Dates: start: 20220513
  3. ENARODUSTAT [Suspect]
     Active Substance: ENARODUSTAT
     Dosage: 4 MILLIGRAM, QD
     Route: 048
     Dates: start: 20220610
  4. ENARODUSTAT [Suspect]
     Active Substance: ENARODUSTAT
     Dosage: 6 MILLIGRAM, QD
     Route: 048
     Dates: start: 20221224
  5. ENARODUSTAT [Suspect]
     Active Substance: ENARODUSTAT
     Dosage: 6 MILLIGRAM, QD
     Route: 048
     Dates: start: 20231222
  6. VONOPRAZAN FUMARATE [Concomitant]
     Active Substance: VONOPRAZAN FUMARATE
     Indication: Gastrooesophageal reflux disease
     Dosage: 10 MILLIGRAM, QD
     Route: 048
  7. ROSUVASTATIN CALCIUM [Concomitant]
     Active Substance: ROSUVASTATIN CALCIUM
     Indication: Dyslipidaemia
     Dosage: 2.5 MILLIGRAM, QD
     Route: 048
     Dates: end: 20231025
  8. FEBUXOSTAT [Concomitant]
     Active Substance: FEBUXOSTAT
     Indication: Hyperuricaemia
     Dosage: 10 MILLIGRAM, QD
     Route: 048
  9. AZOSEMIDE [Concomitant]
     Active Substance: AZOSEMIDE
     Indication: Cardiac failure chronic
     Dosage: 30 MILLIGRAM, QD
     Route: 048
     Dates: end: 20231025
  10. AZOSEMIDE [Concomitant]
     Active Substance: AZOSEMIDE
     Dosage: 15 MILLIGRAM, QD
     Route: 048
     Dates: start: 20221118, end: 20231025
  11. SAMSCA [Concomitant]
     Active Substance: TOLVAPTAN
     Indication: Cardiac failure chronic
     Dosage: 7.5 MILLIGRAM, QD
     Route: 048
     Dates: end: 20221117
  12. SAMSCA [Concomitant]
     Active Substance: TOLVAPTAN
     Dosage: 15 MILLIGRAM, QD
     Route: 048
     Dates: start: 20221118
  13. METHIMAZOLE [Concomitant]
     Active Substance: METHIMAZOLE
     Indication: Hyperthyroidism
     Dosage: 2.5 MILLIGRAM, QD
     Route: 048
  14. DOTINURAD [Concomitant]
     Active Substance: DOTINURAD
     Indication: Hyperuricaemia
     Dosage: 0.5 MILLIGRAM, QD
     Route: 048
     Dates: end: 20231022
  15. CARVEDILOL [Concomitant]
     Active Substance: CARVEDILOL
     Indication: Essential hypertension
     Dosage: 10 MILLIGRAM, BID
     Route: 048
  16. CARVEDILOL [Concomitant]
     Active Substance: CARVEDILOL
     Indication: Atrial fibrillation
  17. APRINDINE HYDROCHLORIDE [Concomitant]
     Active Substance: APRINDINE HYDROCHLORIDE
     Indication: Atrial fibrillation
     Dosage: 20 MILLIGRAM, BID
     Route: 048
  18. CILOSTAZOL [Concomitant]
     Active Substance: CILOSTAZOL
     Indication: Peripheral arterial occlusive disease
     Dosage: 100 MILLIGRAM, BID
     Route: 048
  19. CALCIUM POLYSTYRENE SULFONATE [Concomitant]
     Active Substance: CALCIUM POLYSTYRENE SULFONATE
     Indication: Diabetic nephropathy
     Dosage: 25 GRAM, QD
     Route: 048
     Dates: end: 20231025
  20. CALCIUM POLYSTYRENE SULFONATE [Concomitant]
     Active Substance: CALCIUM POLYSTYRENE SULFONATE
     Indication: Hyperkalaemia
  21. WARFARIN POTASSIUM [Concomitant]
     Active Substance: WARFARIN POTASSIUM
     Indication: Atrial fibrillation
     Dosage: 3 MILLIGRAM, QD
     Route: 048
     Dates: end: 20240111
  22. WARFARIN POTASSIUM [Concomitant]
     Active Substance: WARFARIN POTASSIUM
     Dosage: 2.75 MILLIGRAM, QD
     Route: 048
     Dates: start: 20240112
  23. KREMEZIN [Concomitant]
     Active Substance: ACTIVATED CHARCOAL
     Indication: Diabetic nephropathy
     Dosage: 2 GRAM, TID
     Route: 048
  24. ENTRESTO [Concomitant]
     Active Substance: SACUBITRIL\VALSARTAN
     Indication: Cardiac failure chronic
     Dosage: 200 MILLIGRAM, BID
     Route: 048
     Dates: end: 20230803
  25. ENTRESTO [Concomitant]
     Active Substance: SACUBITRIL\VALSARTAN
     Dosage: 100 MILLIGRAM, BID
     Route: 048
     Dates: start: 20230804, end: 20230824
  26. ENTRESTO [Concomitant]
     Active Substance: SACUBITRIL\VALSARTAN
     Dosage: 50 MILLIGRAM, BID
     Route: 048
     Dates: start: 20230825
  27. ALPROSTADIL [Concomitant]
     Active Substance: ALPROSTADIL
     Indication: Ischaemic cardiomyopathy
     Dosage: 2 MILLILITER, PRN
     Route: 042
  28. KERENDIA [Concomitant]
     Active Substance: FINERENONE
     Indication: Diabetic nephropathy
     Dosage: 10 MILLIGRAM, QD
     Route: 048
     Dates: start: 20230127
  29. KERENDIA [Concomitant]
     Active Substance: FINERENONE
     Indication: Diabetes mellitus

REACTIONS (1)
  - Femur fracture [Recovering/Resolving]

NARRATIVE: CASE EVENT DATE: 20230928
